FAERS Safety Report 12546564 (Version 1)
Quarter: 2016Q3

REPORT INFORMATION
  Report Type: Other
  Country: US (occurrence: US)
  Receive Date: 20160711
  Receipt Date: 20160711
  Transmission Date: 20161109
  Serious: Yes (Other)
  Sender: FDA-Public Use
  Company Number: US-COL_23274_2016

PATIENT
  Sex: Male

DRUGS (1)
  1. COLGATE BAKING SODA TARTAR CONTROL TOOTHPASTE UNSPECIFIED [Suspect]
     Active Substance: SODIUM FLUORIDE
     Indication: PRODUCT USED FOR UNKNOWN INDICATION
     Dosage: NI/NI/
     Route: 048

REACTIONS (1)
  - Malaise [Recovered/Resolved]
